FAERS Safety Report 24368178 (Version 1)
Quarter: 2024Q3

REPORT INFORMATION
  Report Type: Spontaneous
  Country: US (occurrence: US)
  Receive Date: 20240926
  Receipt Date: 20240926
  Transmission Date: 20241017
  Serious: No
  Sender: SANOFI AVENTIS
  Company Number: US-SA-2024SA273594

PATIENT
  Age: 63 Year
  Sex: Female
  Weight: 83.91 kg

DRUGS (9)
  1. DUPIXENT [Suspect]
     Active Substance: DUPILUMAB
     Indication: Dermatitis atopic
     Dosage: 300 MG, QOW
     Route: 058
     Dates: start: 202407
  2. PIOGLITAZONE [Concomitant]
     Active Substance: PIOGLITAZONE
  3. FARXIGA [Concomitant]
     Active Substance: DAPAGLIFLOZIN PROPANEDIOL
  4. FAMOTIDINE [Concomitant]
     Active Substance: FAMOTIDINE
  5. ATORVASTATIN [Concomitant]
     Active Substance: ATORVASTATIN
  6. METOPROLOL [Concomitant]
     Active Substance: METOPROLOL
  7. ESTRADIOL [Concomitant]
     Active Substance: ESTRADIOL
  8. ELIQUIS [Concomitant]
     Active Substance: APIXABAN
  9. LANSOPRAZOLE [Concomitant]
     Active Substance: LANSOPRAZOLE

REACTIONS (3)
  - Abdominal discomfort [Unknown]
  - Pruritus [Unknown]
  - Therapeutic response shortened [Unknown]

NARRATIVE: CASE EVENT DATE: 20240101
